FAERS Safety Report 24635106 (Version 1)
Quarter: 2024Q4

REPORT INFORMATION
  Report Type: Spontaneous
  Country: CN (occurrence: CN)
  Receive Date: 20241119
  Receipt Date: 20241119
  Transmission Date: 20250114
  Serious: Yes (Hospitalization)
  Sender: PHARMACOSMOS A/S
  Company Number: None

PATIENT
  Age: 18 Year
  Sex: Female
  Weight: 60 kg

DRUGS (1)
  1. IRON ISOMALTOSIDE 1000 [Suspect]
     Active Substance: IRON ISOMALTOSIDE 1000
     Indication: Iron deficiency anaemia
     Dates: start: 20241101, end: 20241101

REACTIONS (6)
  - Chest discomfort [Recovered/Resolved]
  - Abdominal distension [Recovered/Resolved]
  - Hypotension [Recovered/Resolved]
  - Vitreous floaters [Recovered/Resolved]
  - Dyspnoea [Recovered/Resolved]
  - Hypoaesthesia [Recovered/Resolved]

NARRATIVE: CASE EVENT DATE: 20241101
